FAERS Safety Report 5490681-6 (Version None)
Quarter: 2007Q4

REPORT INFORMATION
  Report Type: 
  Country: None (occurrence: None)
  Receive Date: 20071019
  Receipt Date: 20071017
  Transmission Date: 20080405
  Serious: Yes (Hospitalization)
  Sender: FDA-Public Use
  Company Number: DE-BAYER-200710914BVD

PATIENT
  Age: 45 Year
  Sex: Male

DRUGS (31)
  1. SORAFENIB [Suspect]
     Dosage: UNIT DOSE: 400 MG
     Route: 048
     Dates: start: 20070624, end: 20070709
  2. SORAFENIB [Suspect]
     Dosage: UNIT DOSE: 400 MG
     Route: 048
     Dates: start: 20070731, end: 20070813
  3. SORAFENIB [Suspect]
     Dosage: UNIT DOSE: 400 MG
     Route: 048
     Dates: start: 20070710, end: 20070730
  4. CISPLATIN [Suspect]
     Route: 042
     Dates: start: 20070731, end: 20070731
  5. CISPLATIN [Suspect]
     Route: 042
     Dates: start: 20070619, end: 20070619
  6. CISPLATIN [Suspect]
     Route: 042
     Dates: start: 20070710, end: 20070710
  7. GEMCITABINE HCL [Suspect]
     Route: 042
     Dates: start: 20070619, end: 20070619
  8. GEMCITABINE HCL [Suspect]
     Route: 042
     Dates: start: 20070807, end: 20070807
  9. GEMCITABINE HCL [Suspect]
     Route: 042
     Dates: start: 20070626, end: 20070626
  10. GEMCITABINE HCL [Suspect]
     Route: 042
     Dates: start: 20070710, end: 20070710
  11. GEMCITABINE HCL [Suspect]
     Route: 042
     Dates: start: 20070731, end: 20070731
  12. RINGER [Concomitant]
     Route: 042
     Dates: start: 20070619, end: 20070619
  13. RINGER [Concomitant]
     Route: 042
     Dates: start: 20070731, end: 20070731
  14. RINGER [Concomitant]
     Route: 042
     Dates: start: 20070710, end: 20070710
  15. LASIX [Concomitant]
     Dates: start: 20070731, end: 20070731
  16. LASIX [Concomitant]
     Dates: start: 20070619, end: 20070619
  17. LASIX [Concomitant]
     Dates: start: 20070710, end: 20070710
  18. ZOFRAN [Concomitant]
     Dates: start: 20070619, end: 20070619
  19. ZOFRAN [Concomitant]
     Dates: start: 20070731, end: 20070731
  20. ZOFRAN [Concomitant]
     Dates: start: 20070710, end: 20070710
  21. FORTECORTIN [Concomitant]
     Route: 048
     Dates: start: 20070619, end: 20070619
  22. FORTECORTIN [Concomitant]
     Dates: start: 20070710, end: 20070710
  23. FORTECORTIN [Concomitant]
     Dates: start: 20070731, end: 20070731
  24. TRANSTEC [Concomitant]
     Dates: start: 20070701
  25. MOVICOL [Concomitant]
     Route: 048
  26. MAALOXAN [Concomitant]
     Route: 048
     Dates: start: 20070601
  27. PASPERTIN [Concomitant]
     Route: 048
     Dates: start: 20070601
  28. AMITRIPTYLINE HCL [Concomitant]
     Route: 048
     Dates: start: 20070601
  29. PANTOPRAZOLE SODIUM [Concomitant]
     Route: 048
     Dates: start: 20070601
  30. VOLTAREN [Concomitant]
     Dosage: UNIT DOSE: 50 MG
     Route: 048
     Dates: start: 20070601
  31. BUPRENORPHINE HCL [Concomitant]
     Dates: start: 20070601

REACTIONS (1)
  - GENERAL PHYSICAL HEALTH DETERIORATION [None]
